FAERS Safety Report 8547051-3 (Version None)
Quarter: 2012Q3

REPORT INFORMATION
  Report Type: 
  Country: None (occurrence: None)
  Receive Date: 20120727
  Receipt Date: 20120313
  Transmission Date: 20120928
  Serious: No
  Sender: FDA-Public Use
  Company Number: US-ASTRAZENECA-2012SE17447

PATIENT
  Age: 53 Year
  Sex: Female
  Weight: 82.6 kg

DRUGS (6)
  1. AMBIEN [Suspect]
     Route: 065
  2. LITHIUM CARBONATE [Suspect]
     Route: 048
  3. CELEXA [Suspect]
     Dosage: 10-15 MG, QAM
     Route: 065
  4. SEROQUEL [Suspect]
     Indication: BIPOLAR II DISORDER
     Route: 048
     Dates: start: 20111220, end: 20120303
  5. TRAZODONE HYDROCHLORIDE [Suspect]
     Route: 065
  6. LITHIUM CARBONATE [Suspect]
     Route: 048

REACTIONS (2)
  - TACHYPHRENIA [None]
  - INSOMNIA [None]
